FAERS Safety Report 9490835 (Version 4)
Quarter: 2013Q4

REPORT INFORMATION
  Report Type: Spontaneous
  Country: US (occurrence: US)
  Receive Date: 20130830
  Receipt Date: 20131031
  Transmission Date: 20140711
  Serious: Yes (Hospitalization)
  Sender: FDA-Public Use
  Company Number: US-JNJFOC-20130813703

PATIENT
  Sex: Female
  Weight: 49.9 kg

DRUGS (19)
  1. DURAGESIC [Suspect]
     Indication: PAIN
     Route: 062
  2. DURAGESIC [Suspect]
     Indication: OSTEOPOROSIS
     Route: 062
  3. LIDODERM [Concomitant]
     Indication: PAIN
     Dosage: WORN DURING DAY BUT NOT AT NIGHT
     Route: 065
  4. MONTELUKAST [Concomitant]
     Route: 065
  5. DILTIAZEM CD [Concomitant]
     Route: 065
  6. LEVOTHYROX [Concomitant]
     Route: 065
  7. OXYBUTYNIN [Concomitant]
     Route: 065
  8. OMEPRAZOLE [Concomitant]
     Route: 065
  9. LAMICTAL [Concomitant]
     Route: 065
  10. HYDROCHLOROTHIAZIDE [Concomitant]
     Route: 065
  11. AMLODIPINE [Concomitant]
     Route: 065
  12. LEVOCETIRIZINE [Concomitant]
     Route: 065
  13. ALPRAZOLAM [Concomitant]
     Route: 065
  14. TRAZODONE [Concomitant]
     Route: 065
  15. HYDROCODONE/APAP [Concomitant]
     Dosage: 5/500
     Route: 065
  16. DICYCLOMINE [Concomitant]
     Route: 065
  17. BUSPIRONE [Concomitant]
     Route: 065
  18. LIDODERM [Concomitant]
     Route: 065
  19. CLOMIPRAMINE [Concomitant]
     Route: 065

REACTIONS (9)
  - Immune system disorder [Not Recovered/Not Resolved]
  - Chronic obstructive pulmonary disease [Unknown]
  - Bone disorder [Not Recovered/Not Resolved]
  - Joint injury [Not Recovered/Not Resolved]
  - Nuchal rigidity [Unknown]
  - Malaise [Not Recovered/Not Resolved]
  - Adverse event [Not Recovered/Not Resolved]
  - Off label use [Unknown]
  - Drug ineffective [Unknown]
